FAERS Safety Report 15327561 (Version 1)
Quarter: 2018Q3

REPORT INFORMATION
  Report Type: Spontaneous
  Country: None (occurrence: FI)
  Receive Date: 20180828
  Receipt Date: 20180828
  Transmission Date: 20181010
  Serious: Yes (Other)
  Sender: FDA-Public Use
  Company Number: FI-POPULATION COUNCIL, INC.-2054372

PATIENT
  Age: 40 Year
  Sex: Female

DRUGS (1)
  1. JADELLE [Suspect]
     Active Substance: LEVONORGESTREL
     Indication: CONTRACEPTION
     Route: 059
     Dates: start: 20170201

REACTIONS (2)
  - Pregnancy with implant contraceptive [None]
  - Drug ineffective [None]
